FAERS Safety Report 23525484 (Version 4)
Quarter: 2024Q1

REPORT INFORMATION
  Report Type: Report from Study
  Country: IL (occurrence: IL)
  Receive Date: 20240215
  Receipt Date: 20240307
  Transmission Date: 20240410
  Serious: Yes (Hospitalization)
  Sender: FDA-Public Use
  Company Number: IL-ABBVIE-5633058

PATIENT
  Age: 71 Year
  Sex: Female

DRUGS (2)
  1. CARBIDOPA\LEVODOPA [Suspect]
     Active Substance: CARBIDOPA\LEVODOPA
     Indication: Parkinson^s disease
     Route: 050
     Dates: start: 20181022
  2. CARBIDOPA\LEVODOPA [Suspect]
     Active Substance: CARBIDOPA\LEVODOPA
     Dosage: MORNING DOSAGE 7ML,CONTINUOUS DOSAGE 4.5ML/H, EXTRA DOSAGE 3ML?TEMPORARY DISCONTINUATION
     Route: 050
     Dates: end: 202402

REACTIONS (4)
  - Embedded device [Recovering/Resolving]
  - Aspiration [Recovering/Resolving]
  - Complication of device removal [Unknown]
  - Patient uncooperative [Unknown]

NARRATIVE: CASE EVENT DATE: 20240205
